FAERS Safety Report 19497529 (Version 2)
Quarter: 2022Q3

REPORT INFORMATION
  Report Type: Spontaneous
  Country: US (occurrence: US)
  Receive Date: 20210706
  Receipt Date: 20220902
  Transmission Date: 20221027
  Serious: No
  Sender: FDA-Public Use
  Company Number: US-ORGANON-O2106USA002071

PATIENT
  Age: 21 Year
  Sex: Female

DRUGS (4)
  1. COZAAR [Suspect]
     Active Substance: LOSARTAN POTASSIUM
     Indication: Glomerulonephritis minimal lesion
     Dosage: 25 MILLIGRAM, QD
  2. PREDNISONE [Concomitant]
     Active Substance: PREDNISONE
     Indication: Glomerulonephritis minimal lesion
     Dosage: 50 MILLIGRAM, QD
  3. FUROSEMIDE [Concomitant]
     Active Substance: FUROSEMIDE
     Indication: Glomerulonephritis minimal lesion
     Dosage: 20 MILLIGRAM, QD
  4. ATORVASTATIN [Concomitant]
     Active Substance: ATORVASTATIN
     Indication: Glomerulonephritis minimal lesion
     Dosage: 80 MILLIGRAM, QD

REACTIONS (1)
  - Product use in unapproved indication [Unknown]
